FAERS Safety Report 9230147 (Version 1)
Quarter: 2013Q2

REPORT INFORMATION
  Report Type: Spontaneous
  Country: US (occurrence: None)
  Receive Date: 20130412
  Receipt Date: 20130412
  Transmission Date: 20140414
  Serious: Yes (Disabling)
  Sender: FDA-Public Use
  Company Number: None

PATIENT
  Age: 34 Year
  Sex: Male
  Weight: 88.45 kg

DRUGS (2)
  1. MEFLOQUINE [Suspect]
     Dosage: 250MG 3X WEEK 1 ORAL
     Route: 048
     Dates: start: 19910826, end: 19910830
  2. MEFLOQUINE [Suspect]
     Dosage: 250MG 1X WEEKLY WEEK 2-12 ORAL
     Route: 048
     Dates: start: 19910902, end: 19911126

REACTIONS (10)
  - Personality change [None]
  - Anxiety [None]
  - Phobia [None]
  - Insomnia [None]
  - Tinnitus [None]
  - Abnormal dreams [None]
  - Nightmare [None]
  - Amnesia [None]
  - Visual impairment [None]
  - Disturbance in attention [None]
